FAERS Safety Report 17854297 (Version 1)
Quarter: 2020Q2

REPORT INFORMATION
  Report Type: Spontaneous
  Country: US (occurrence: US)
  Receive Date: 20200603
  Receipt Date: 20200603
  Transmission Date: 20200714
  Serious: Yes (Other)
  Sender: FDA-Public Use
  Company Number: US-ACCORD-150012

PATIENT
  Age: 59 Year
  Sex: Male
  Weight: 64 kg

DRUGS (7)
  1. ENALAPRIL [Concomitant]
     Active Substance: ENALAPRIL
     Indication: WOLFF-PARKINSON-WHITE SYNDROME
     Dosage: STRENGTH: 10 MG, DAILY
     Route: 048
     Dates: start: 20090220
  2. OXALIPLATIN. [Concomitant]
     Active Substance: OXALIPLATIN
     Indication: COLON CANCER
     Dosage: FOR 1 DAY
     Route: 042
     Dates: start: 20190612
  3. HUMALOG [Concomitant]
     Active Substance: INSULIN LISPRO
     Dosage: STRENGTH: 100 UNITS/ML, TAKE AS DIRECTED
     Route: 058
  4. CAPECITABINE ACCORD [Suspect]
     Active Substance: CAPECITABINE
     Indication: COLON CANCER
     Dosage: STRENGTH: 500 MG, TWICE DAILY, FOR 14 DAYS ON, 7 DAYS OFF, TAKE AS DIRECTED
     Route: 048
     Dates: start: 20190612, end: 20190710
  5. PROPRANOLOL [Concomitant]
     Active Substance: PROPRANOLOL HYDROCHLORIDE
     Indication: WOLFF-PARKINSON-WHITE SYNDROME
     Dosage: STRENGTH: 40 MG, DAILY
     Route: 048
     Dates: start: 20090220
  6. SIMVASTATIN. [Concomitant]
     Active Substance: SIMVASTATIN
     Dosage: STRENGTH: 10 MG, DAILY
     Route: 048
  7. TOUJEO [Concomitant]
     Active Substance: INSULIN GLARGINE
     Dosage: STRENGTH: 35 UNITS
     Route: 058

REACTIONS (2)
  - Palmar-plantar erythrodysaesthesia syndrome [Recovered/Resolved]
  - Diarrhoea [Recovered/Resolved]

NARRATIVE: CASE EVENT DATE: 20190710
